FAERS Safety Report 4654560-6 (Version None)
Quarter: 2005Q2

REPORT INFORMATION
  Report Type: 
  Country: None (occurrence: None)
  Receive Date: 20050503
  Receipt Date: 20050503
  Transmission Date: 20051028
  Serious: No
  Sender: FDA-Public Use
  Company Number: None

PATIENT
  Age: 63 Year
  Sex: Female
  Weight: 49.8957 kg

DRUGS (4)
  1. DOCETAXEL [Suspect]
     Indication: NASAL SINUS CANCER
     Dosage: 28.00 MG/M^2   WEEKLYX3 DOSES   INTRAVENOU
     Route: 042
     Dates: start: 20050215, end: 20050322
  2. DOCETAXEL [Suspect]
     Indication: SQUAMOUS CELL CARCINOMA
     Dosage: 28.00 MG/M^2   WEEKLYX3 DOSES   INTRAVENOU
     Route: 042
     Dates: start: 20050215, end: 20050322
  3. GEFITINIB [Suspect]
     Indication: NASAL SINUS CANCER
     Dosage: 250.00 MG   DAILY X28 DAYS   ORAL
     Route: 048
     Dates: start: 20050215, end: 20050322
  4. GEFITINIB [Suspect]
     Indication: SQUAMOUS CELL CARCINOMA
     Dosage: 250.00 MG   DAILY X28 DAYS   ORAL
     Route: 048
     Dates: start: 20050215, end: 20050322

REACTIONS (4)
  - ABDOMINAL PAIN UPPER [None]
  - DUODENAL ULCER PERFORATION [None]
  - HYPERHIDROSIS [None]
  - NAUSEA [None]
